FAERS Safety Report 8120239 (Version 4)
Quarter: 2013Q2

REPORT INFORMATION
  Report Type: Spontaneous
  Country: US (occurrence: None)
  Receive Date: 20110905
  Receipt Date: 20121031
  Transmission Date: 20140414
  Serious: Yes (Other)
  Sender: FDA-Public Use
  Company Number: PHEH2011US02766

PATIENT
  Age: 29 Year
  Sex: Female

DRUGS (3)
  1. GILENYA [Suspect]
     Indication: MULTIPLE SCLEROSIS
     Dosage: 0.5 MG, QD, ORAL
     Route: 048
     Dates: start: 20110826
  2. WELLBUTRIN (BUPROPION HYDROCHLORIDE) [Concomitant]
  3. TOPAMAX [Concomitant]

REACTIONS (9)
  - HEART RATE DECREASED [None]
  - NAUSEA [None]
  - ABDOMINAL PAIN [None]
  - DIZZINESS [None]
  - DIARRHOEA [None]
  - MIGRAINE [None]
  - WEIGHT DECREASED [None]
  - Depression [None]
  - Decreased interest [None]
